FAERS Safety Report 12055431 (Version 1)
Quarter: 2016Q1

REPORT INFORMATION
  Report Type: Report from Study
  Country: US (occurrence: US)
  Receive Date: 20160209
  Receipt Date: 20160209
  Transmission Date: 20160526
  Serious: No
  Sender: FDA-Public Use
  Company Number: US-ABBVIE-15P-163-1504617-00

PATIENT
  Sex: Male

DRUGS (3)
  1. HUMIRA [Suspect]
     Active Substance: ADALIMUMAB
     Indication: CROHN^S DISEASE
     Dosage: LOADING DOSE
     Route: 058
     Dates: start: 201508, end: 201508
  2. HUMIRA [Suspect]
     Active Substance: ADALIMUMAB
     Indication: CROHN^S DISEASE
     Route: 058
     Dates: start: 201508, end: 201508
  3. HUMIRA [Suspect]
     Active Substance: ADALIMUMAB
     Route: 058
     Dates: start: 201509

REACTIONS (15)
  - Abdominal pain upper [Unknown]
  - Impaired healing [Unknown]
  - Renal pain [Unknown]
  - Decreased appetite [Unknown]
  - Depressed mood [Unknown]
  - Diarrhoea [Unknown]
  - Insomnia [Unknown]
  - Kidney infection [Unknown]
  - Laceration [Unknown]
  - Anxiety [Unknown]
  - Fear [Unknown]
  - Pain [Unknown]
  - Fatigue [Unknown]
  - Weight decreased [Unknown]
  - Pyrexia [Unknown]

NARRATIVE: CASE EVENT DATE: 2015
